FAERS Safety Report 13220483 (Version 1)
Quarter: 2017Q1

REPORT INFORMATION
  Report Type: Spontaneous
  Country: US (occurrence: US)
  Receive Date: 20170211
  Receipt Date: 20170211
  Transmission Date: 20170428
  Serious: No
  Sender: FDA-Public Use
  Company Number: US-ACORDA-ACO_129074_2016

PATIENT
  Age: 46 Year
  Sex: Female
  Weight: 72.56 kg

DRUGS (5)
  1. AMPYRA [Suspect]
     Active Substance: DALFAMPRIDINE
     Indication: GAIT DISTURBANCE
     Dosage: 10 MG, BID (ONLY TOOK 1 TABLET)
     Route: 048
     Dates: start: 201511, end: 201511
  2. MODAFINIL. [Concomitant]
     Active Substance: MODAFINIL
     Indication: PRODUCT USED FOR UNKNOWN INDICATION
     Route: 065
  3. OXYCONTIN [Concomitant]
     Active Substance: OXYCODONE HYDROCHLORIDE
     Indication: PRODUCT USED FOR UNKNOWN INDICATION
     Route: 065
  4. AUBAGIO [Concomitant]
     Active Substance: TERIFLUNOMIDE
     Indication: PRODUCT USED FOR UNKNOWN INDICATION
     Route: 065
  5. CYMBALTA [Concomitant]
     Active Substance: DULOXETINE HYDROCHLORIDE
     Indication: PRODUCT USED FOR UNKNOWN INDICATION
     Route: 065

REACTIONS (13)
  - Somnolence [Not Recovered/Not Resolved]
  - Dysstasia [Recovered/Resolved]
  - Limb discomfort [Recovered/Resolved]
  - Fatigue [Unknown]
  - Balance disorder [Recovered/Resolved]
  - Multiple sclerosis relapse [Unknown]
  - Somnolence [Unknown]
  - Tinnitus [Unknown]
  - Tinnitus [Not Recovered/Not Resolved]
  - Blood potassium decreased [Unknown]
  - Multiple sclerosis relapse [Not Recovered/Not Resolved]
  - Fatigue [Not Recovered/Not Resolved]
  - Muscular weakness [Recovered/Resolved]

NARRATIVE: CASE EVENT DATE: 201511
